FAERS Safety Report 6319179-X (Version None)
Quarter: 2009Q3

REPORT INFORMATION
  Report Type: 
  Country: None (occurrence: None)
  Receive Date: 20090821
  Receipt Date: 20080813
  Transmission Date: 20100115
  Serious: No
  Sender: FDA-Public Use
  Company Number: US-ABBOTT-08P-163-0470507-00

PATIENT
  Sex: Female
  Weight: 62.652 kg

DRUGS (3)
  1. NIASPAN [Suspect]
     Indication: BLOOD CHOLESTEROL
     Route: 048
     Dates: start: 20080701, end: 20080701
  2. ASPIRIN [Suspect]
     Indication: PROPHYLAXIS
     Route: 048
     Dates: start: 20080701, end: 20080701
  3. ASPIRIN [Suspect]
     Indication: FLUSHING

REACTIONS (2)
  - HAEMATOCHEZIA [None]
  - HEADACHE [None]
